FAERS Safety Report 8690053 (Version 2)
Quarter: 2013Q3

REPORT INFORMATION
  Report Type: Spontaneous
  Country: US (occurrence: US)
  Receive Date: 20120727
  Receipt Date: 20130830
  Transmission Date: 20140515
  Serious: Yes (Death)
  Sender: FDA-Public Use
  Company Number: US-ASTRAZENECA-2012SE10887

PATIENT
  Age: 83 Year
  Sex: Male

DRUGS (2)
  1. SEROQUEL XR [Suspect]
     Indication: DEMENTIA
     Route: 048
  2. SEROQUEL XR [Suspect]
     Indication: DEMENTIA
     Route: 048

REACTIONS (3)
  - Death [Fatal]
  - Insomnia [Unknown]
  - Off label use [Unknown]
